FAERS Safety Report 5799206-9 (Version None)
Quarter: 2008Q3

REPORT INFORMATION
  Report Type: 
  Country: None (occurrence: None)
  Receive Date: 20080702
  Receipt Date: 20080623
  Transmission Date: 20090109
  Serious: Yes (Other)
  Sender: FDA-Public Use
  Company Number: US-PFIZER INC-2008037321

PATIENT
  Sex: Male
  Weight: 108.9 kg

DRUGS (5)
  1. CHANTIX [Suspect]
     Indication: SMOKING CESSATION THERAPY
  2. PROTONIX [Concomitant]
  3. IRON SULFATETHIAMIN COMPOUND TAB [Concomitant]
  4. DEPAKOTE [Concomitant]
  5. RISPERDAL [Concomitant]

REACTIONS (6)
  - ALTERED VISUAL DEPTH PERCEPTION [None]
  - IMPAIRED DRIVING ABILITY [None]
  - LABYRINTHITIS [None]
  - LOSS OF CONSCIOUSNESS [None]
  - NAUSEA [None]
  - VERTIGO [None]
